FAERS Safety Report 4988098-3 (Version None)
Quarter: 2006Q2

REPORT INFORMATION
  Report Type: 
  Country: None (occurrence: None)
  Receive Date: 20060501
  Receipt Date: 20050513
  Transmission Date: 20061013
  Serious: Yes (Hospitalization)
  Sender: FDA-Public Use
  Company Number: US-MERCK-0505USA01810

PATIENT
  Age: 47 Year
  Sex: Female

DRUGS (1)
  1. VIOXX [Suspect]
     Route: 048

REACTIONS (21)
  - ACUTE MYOCARDIAL INFARCTION [None]
  - ANGINA PECTORIS [None]
  - ANTERIOR CHAMBER DISORDER [None]
  - ARTERIOSCLEROSIS CORONARY ARTERY [None]
  - BACK PAIN [None]
  - BRONCHITIS [None]
  - CARDIOMEGALY [None]
  - CHEST PAIN [None]
  - CHOLELITHIASIS [None]
  - CHRONIC OBSTRUCTIVE PULMONARY DISEASE [None]
  - CONDITION AGGRAVATED [None]
  - CORONARY ARTERY DISEASE [None]
  - CORONARY ARTERY STENOSIS [None]
  - DIZZINESS [None]
  - ELECTROCARDIOGRAM ST-T CHANGE [None]
  - HIATUS HERNIA [None]
  - INCISION SITE COMPLICATION [None]
  - MITRAL VALVE PROLAPSE [None]
  - MYOCARDIAL ISCHAEMIA [None]
  - POSTINFARCTION ANGINA [None]
  - SINUS BRADYCARDIA [None]
